FAERS Safety Report 17349325 (Version 1)
Quarter: 2020Q1

REPORT INFORMATION
  Report Type: Spontaneous
  Country: US (occurrence: US)
  Receive Date: 20200130
  Receipt Date: 20200130
  Transmission Date: 20200409
  Serious: Yes (Disabling, Other)
  Sender: FDA-Public Use
  Company Number: US-SA-2020SA020502

PATIENT
  Sex: Male

DRUGS (1)
  1. GOLD BOND ORIGINAL STRENGTH POWDER [Suspect]
     Active Substance: MENTHOL\ZINC OXIDE

REACTIONS (7)
  - Anxiety [Unknown]
  - Lung neoplasm malignant [Unknown]
  - Loss of personal independence in daily activities [Unknown]
  - Pain [Unknown]
  - Deformity [Unknown]
  - Exposure to chemical pollution [Unknown]
  - Emotional distress [Unknown]

NARRATIVE: CASE EVENT DATE: 20180621
